FAERS Safety Report 9611473 (Version 5)
Quarter: 2014Q1

REPORT INFORMATION
  Report Type: Report from Study
  Country: CN (occurrence: CN)
  Receive Date: 20131010
  Receipt Date: 20140307
  Transmission Date: 20141002
  Serious: Yes (Life-Threatening, Hospitalization)
  Sender: FDA-Public Use
  Company Number: CN-ASTRAZENECA-2013SE73947

PATIENT
  Age: 24981 Day
  Sex: Male

DRUGS (8)
  1. AZD6140 [Suspect]
     Indication: CORONARY ARTERY DISEASE
     Route: 048
     Dates: start: 20120110, end: 20120829
  2. AZD6140 [Suspect]
     Indication: CORONARY ARTERY DISEASE
     Dosage: MODIFIED STUDY TREATMENT IN COMBINATION WITH CLOPIDOGREL/PLACEBO
     Route: 048
     Dates: start: 20121025, end: 20130928
  3. PLACEBO [Suspect]
     Indication: ARTERIAL STENT INSERTION
     Route: 048
     Dates: start: 20121025, end: 20130928
  4. ASA [Suspect]
     Route: 048
     Dates: end: 20130928
  5. ASA [Suspect]
     Route: 048
     Dates: start: 20131026
  6. LIPITOR [Concomitant]
     Indication: CARDIAC DISORDER
     Route: 048
     Dates: start: 20120829
  7. TELMISARTAN [Concomitant]
     Indication: CARDIAC DISORDER
     Route: 048
     Dates: start: 20120829
  8. TELMISARTAN [Concomitant]
     Indication: HYPERTENSION
     Route: 048
     Dates: start: 20120829

REACTIONS (2)
  - Gastric cancer [Recovered/Resolved]
  - Upper gastrointestinal haemorrhage [Recovered/Resolved]
